FAERS Safety Report 15978303 (Version 1)
Quarter: 2019Q1

REPORT INFORMATION
  Report Type: Report from Study
  Country: AT (occurrence: AT)
  Receive Date: 20190219
  Receipt Date: 20190219
  Transmission Date: 20190418
  Serious: Yes (Other)
  Sender: FDA-Public Use
  Company Number: AT-TEVA-2019-AT-1014016

PATIENT
  Age: 22 Year
  Sex: Male
  Weight: 80.6 kg

DRUGS (19)
  1. TRUXAL [Suspect]
     Active Substance: CHLORPROTHIXENE
     Route: 065
     Dates: start: 20180523, end: 20180523
  2. CISORDINOL [Suspect]
     Active Substance: ZUCLOPENTHIXOL
     Route: 065
     Dates: start: 20180525, end: 20180525
  3. CISORDINOL [Suspect]
     Active Substance: ZUCLOPENTHIXOL
     Route: 065
     Dates: start: 20180523, end: 20180523
  4. BUPROPION HYDROCHLORIDE. [Suspect]
     Active Substance: BUPROPION HYDROCHLORIDE
     Indication: PRODUCT USED FOR UNKNOWN INDICATION
     Dosage: 150 MILLIGRAM DAILY;
     Route: 065
     Dates: start: 20180519, end: 20180521
  5. OLANZAPINE. [Suspect]
     Active Substance: OLANZAPINE
     Indication: PRODUCT USED FOR UNKNOWN INDICATION
     Dosage: 10 MILLIGRAM DAILY;
     Route: 065
     Dates: start: 20180518, end: 20180518
  6. OLANZAPINE. [Suspect]
     Active Substance: OLANZAPINE
     Dosage: 30 MILLIGRAM DAILY;
     Route: 065
     Dates: start: 20180520
  7. OLANZAPINE. [Suspect]
     Active Substance: OLANZAPINE
     Route: 065
     Dates: start: 20180519, end: 20180519
  8. TRUXAL [Suspect]
     Active Substance: CHLORPROTHIXENE
     Dosage: 150 MILLIGRAM DAILY;
     Route: 065
     Dates: start: 20180522, end: 20180522
  9. TEMESTA [LORAZEPAM] [Suspect]
     Active Substance: LORAZEPAM
     Dates: end: 20180517
  10. LORAZEPAM. [Suspect]
     Active Substance: LORAZEPAM
     Dosage: 5.5 MILLIGRAM DAILY;
     Route: 065
     Dates: start: 20180520, end: 20180520
  11. LORAZEPAM. [Suspect]
     Active Substance: LORAZEPAM
     Route: 065
     Dates: start: 20180523, end: 20180523
  12. CISORDINOL [Suspect]
     Active Substance: ZUCLOPENTHIXOL
     Dosage: 100 MILLIGRAM DAILY;
     Route: 065
     Dates: start: 20180522, end: 20180522
  13. CISORDINOL [Suspect]
     Active Substance: ZUCLOPENTHIXOL
     Dosage: 20 MILLIGRAM DAILY;
     Route: 065
     Dates: start: 20180519, end: 20180521
  14. TRUXAL [Suspect]
     Active Substance: CHLORPROTHIXENE
     Indication: PRODUCT USED FOR UNKNOWN INDICATION
     Dosage: 150 MILLIGRAM DAILY;
     Route: 065
     Dates: start: 20180520, end: 20180520
  15. LORAZEPAM. [Suspect]
     Active Substance: LORAZEPAM
     Route: 065
     Dates: start: 20180519, end: 20180519
  16. LORAZEPAM. [Suspect]
     Active Substance: LORAZEPAM
     Route: 065
     Dates: start: 20180521, end: 20180521
  17. LORAZEPAM. [Suspect]
     Active Substance: LORAZEPAM
     Route: 065
     Dates: start: 20180518, end: 20180518
  18. LORAZEPAM. [Suspect]
     Active Substance: LORAZEPAM
     Route: 065
     Dates: start: 20180522, end: 20180522
  19. CISORDINOL [Suspect]
     Active Substance: ZUCLOPENTHIXOL
     Route: 065
     Dates: start: 20180524, end: 20180524

REACTIONS (2)
  - Urine output decreased [Recovered/Resolved]
  - Incontinence [Recovered/Resolved]

NARRATIVE: CASE EVENT DATE: 20180521
